FAERS Safety Report 8403115-6 (Version None)
Quarter: 2012Q2

REPORT INFORMATION
  Report Type: 
  Country: None (occurrence: None)
  Receive Date: 20120601
  Receipt Date: 20120525
  Transmission Date: 20120825
  Serious: Yes (Hospitalization)
  Sender: FDA-Public Use
  Company Number: US-EISAI INC-E7389-02507-SPO-US

PATIENT
  Sex: Female

DRUGS (1)
  1. HALAVEN [Suspect]
     Dosage: UNKNOWN
     Route: 041
     Dates: start: 20120101

REACTIONS (7)
  - VOMITING [None]
  - PLEURAL EFFUSION [None]
  - STOMATITIS [None]
  - THROMBOCYTOPENIA [None]
  - NAUSEA [None]
  - PERICARDIAL EFFUSION [None]
  - OEDEMA PERIPHERAL [None]
